FAERS Safety Report 5408808-0 (Version None)
Quarter: 2007Q3

REPORT INFORMATION
  Report Type: 
  Country: None (occurrence: None)
  Receive Date: 20070808
  Receipt Date: 20070731
  Transmission Date: 20080115
  Serious: Yes (Other)
  Sender: FDA-Public Use
  Company Number: GB-PFIZER INC-2007055402

PATIENT
  Age: 41 Year
  Sex: Female
  Weight: 55 kg

DRUGS (3)
  1. DEPO-PROVERA SUSPENSION/INJ [Suspect]
     Indication: CONTRACEPTION
     Route: 030
     Dates: start: 20011007, end: 20011007
  2. IMIPRAMINE [Concomitant]
     Indication: FIBROMYALGIA
     Route: 048
  3. LISINOPRIL [Concomitant]
     Indication: HYPERTENSION
     Route: 048
     Dates: start: 20070301

REACTIONS (3)
  - FIBROMYALGIA [None]
  - OSTEOARTHRITIS [None]
  - OSTEONECROSIS [None]
